FAERS Safety Report 19822555 (Version 2)
Quarter: 2021Q4

REPORT INFORMATION
  Report Type: Report from Study
  Country: CA (occurrence: CA)
  Receive Date: 20210913
  Receipt Date: 20211108
  Transmission Date: 20220303
  Serious: Yes (Other)
  Sender: FDA-Public Use
  Company Number: CA-SA-2020SA108467

PATIENT
  Age: 19 Year
  Sex: Female

DRUGS (13)
  1. DUPILUMAB [Suspect]
     Active Substance: DUPILUMAB
     Indication: Dermatitis atopic
     Dosage: 600 MG, 1X
     Route: 058
     Dates: start: 20190305, end: 20190305
  2. DUPILUMAB [Suspect]
     Active Substance: DUPILUMAB
     Dosage: 300 MG, QOW
     Route: 058
  3. COVID-19 VACCINE NOS [Suspect]
     Active Substance: COVID-19 VACCINE NOS
     Indication: COVID-19 immunisation
     Dates: start: 20210722
  4. BETAMETHASONE DIPROPIONATE\GENTAMICIN SULFATE [Concomitant]
     Active Substance: BETAMETHASONE DIPROPIONATE\GENTAMICIN SULFATE
     Indication: Dermatitis atopic
     Dosage: UNK UNK, QD
     Route: 061
  5. PROTOPIC [Concomitant]
     Active Substance: TACROLIMUS
     Indication: Dermatitis atopic
     Dosage: UNK UNK, QD
     Route: 061
  6. YAZZ [Concomitant]
     Indication: Oral contraception
     Dosage: UNK UNK, QD
     Route: 048
     Dates: start: 201912
  7. CIPRALEX [Concomitant]
     Active Substance: ESCITALOPRAM OXALATE
     Dosage: 10 MG, QD
     Route: 048
     Dates: start: 201912
  8. CITALOPRAM HYDROCHLORIDE [Concomitant]
     Active Substance: CITALOPRAM HYDROCHLORIDE
     Dosage: UNK
  9. BETADERM [Concomitant]
     Active Substance: BETAMETHASONE VALERATE
  10. CYCLOSPORINE [Concomitant]
     Active Substance: CYCLOSPORINE
  11. TOPICORT [Concomitant]
     Active Substance: DESOXIMETASONE
  12. TACROLIMUS [Concomitant]
     Active Substance: TACROLIMUS
  13. METHOTREXATE [Concomitant]
     Active Substance: METHOTREXATE

REACTIONS (3)
  - Pericarditis [Recovered/Resolved]
  - Quality of life decreased [Unknown]
  - Drug ineffective [Unknown]

NARRATIVE: CASE EVENT DATE: 20200424
